FAERS Safety Report 16847320 (Version 1)
Quarter: 2019Q3

REPORT INFORMATION
  Report Type: Report from Study
  Country: US (occurrence: US)
  Receive Date: 20190924
  Receipt Date: 20190924
  Transmission Date: 20191005
  Serious: Yes (Hospitalization)
  Sender: FDA-Public Use
  Company Number: US-ACTELION-A-NJ2019-195908

PATIENT
  Sex: Female

DRUGS (30)
  1. CEPHALEXIN. [Concomitant]
     Active Substance: CEPHALEXIN
  2. CLOBETASOL [Concomitant]
     Active Substance: CLOBETASOL
  3. MIRTAZAPINE. [Concomitant]
     Active Substance: MIRTAZAPINE
  4. PROPOXYPHENE AND ACETAMINOPHEN [Concomitant]
     Active Substance: ACETAMINOPHEN\PROPOXYPHENE NAPSYLATE
  5. AMITIZA [Concomitant]
     Active Substance: LUBIPROSTONE
  6. FEXOFENADINE [Concomitant]
     Active Substance: FEXOFENADINE HYDROCHLORIDE
  7. PANTOPRAZOLE [Concomitant]
     Active Substance: PANTOPRAZOLE
  8. TRIAMCINOLONE [Concomitant]
     Active Substance: TRIAMCINOLONE
  9. AMLODIPINE [Concomitant]
     Active Substance: AMLODIPINE BESYLATE
  10. BACLOFEN. [Concomitant]
     Active Substance: BACLOFEN
  11. VENLAFAXINE [Concomitant]
     Active Substance: VENLAFAXINE HYDROCHLORIDE
  12. METHOTREXATE. [Concomitant]
     Active Substance: METHOTREXATE
  13. CLOPIDOGREL [Concomitant]
     Active Substance: CLOPIDOGREL BISULFATE
  14. FOLIC ACID. [Concomitant]
     Active Substance: FOLIC ACID
  15. METOCLOPRAM [Concomitant]
     Active Substance: METOCLOPRAMIDE
  16. ROSUVASTATIN. [Concomitant]
     Active Substance: ROSUVASTATIN
  17. WARFARIN [Concomitant]
     Active Substance: WARFARIN
  18. OPSUMIT [Suspect]
     Active Substance: MACITENTAN
     Indication: PULMONARY HYPERTENSION
     Dosage: 10 MG, QD
     Route: 048
     Dates: start: 20181009
  19. NIFEDIPINE. [Concomitant]
     Active Substance: NIFEDIPINE
  20. TORSEMIDE. [Concomitant]
     Active Substance: TORSEMIDE
  21. LEXAPRO [Concomitant]
     Active Substance: ESCITALOPRAM OXALATE
  22. METOPROLOL. [Concomitant]
     Active Substance: METOPROLOL
  23. OMEPRAZOLE. [Concomitant]
     Active Substance: OMEPRAZOLE
  24. TRAMADOL. [Concomitant]
     Active Substance: TRAMADOL
  25. TRAZODONE [Concomitant]
     Active Substance: TRAZODONE HYDROCHLORIDE
  26. VITAMIN D [Concomitant]
     Active Substance: VITAMIN D NOS
  27. XELJANZ [Suspect]
     Active Substance: TOFACITINIB CITRATE
     Indication: ARTHRITIS
     Dosage: 5 MG, BID
     Route: 048
     Dates: start: 20181127
  28. HYDROCODONE BITARTRATE AND ACETAMINOPHEN [Concomitant]
     Active Substance: ACETAMINOPHEN\HYDROCODONE BITARTRATE
  29. KETOROLAC [Concomitant]
     Active Substance: KETOROLAC TROMETHAMINE
  30. KRISTALOSE [Concomitant]
     Active Substance: LACTULOSE

REACTIONS (2)
  - Fall [Unknown]
  - Rib fracture [Unknown]
